FAERS Safety Report 5869807-8 (Version None)
Quarter: 2008Q3

REPORT INFORMATION
  Report Type: 
  Country: None (occurrence: None)
  Receive Date: 20080902
  Receipt Date: 20080822
  Transmission Date: 20090109
  Serious: Yes (Hospitalization)
  Sender: FDA-Public Use
  Company Number: GXKR2008US07674

PATIENT
  Age: 47 Year
  Sex: Female

DRUGS (1)
  1. SALBUTAMOL (NGX) (SALBUTAMOL) INHALER [Suspect]
     Indication: ASTHMA
     Dosage: UP TO 4-6 TIMES DAILY, INHALATION
     Route: 055

REACTIONS (10)
  - ACUTE MYOCARDIAL INFARCTION [None]
  - ASTHMA [None]
  - CONDITION AGGRAVATED [None]
  - CORONARY ARTERY DISEASE [None]
  - HEART RATE INCREASED [None]
  - HYPOXIA [None]
  - INTENTIONAL DRUG MISUSE [None]
  - MYOCARDIAL BRIDGING [None]
  - MYOCARDIAL ISCHAEMIA [None]
  - TREATMENT NONCOMPLIANCE [None]
